FAERS Safety Report 8744195 (Version 3)
Quarter: 2013Q2

REPORT INFORMATION
  Report Type: Report from Study
  Country: CA (occurrence: CA)
  Receive Date: 20120824
  Receipt Date: 20130401
  Transmission Date: 20140414
  Serious: Yes (Hospitalization)
  Sender: FDA-Public Use
  Company Number: CA-ABBOTT-12P-028-0972194-00

PATIENT
  Age: 42 Year
  Sex: Male
  Weight: 95.34 kg

DRUGS (1)
  1. HUMIRA 40 MG/0.8 ML PEN [Suspect]
     Indication: CROHN^S DISEASE
     Route: 058
     Dates: start: 20111130, end: 20120805

REACTIONS (2)
  - Duodenal obstruction [Recovered/Resolved]
  - Crohn^s disease [Recovered/Resolved]
